FAERS Safety Report 9642042 (Version 2)
Quarter: 2013Q4

REPORT INFORMATION
  Report Type: Spontaneous
  Country: JP (occurrence: JP)
  Receive Date: 20131023
  Receipt Date: 20131129
  Transmission Date: 20140711
  Serious: No
  Sender: FDA-Public Use
  Company Number: JP-ROCHE-1291752

PATIENT
  Age: 67 Year
  Sex: Female

DRUGS (8)
  1. RITUXIMAB [Suspect]
     Indication: NON-HODGKIN^S LYMPHOMA
     Dosage: DAILY DOSE
     Route: 042
     Dates: start: 20130822, end: 20130822
  2. RESTAMIN [Concomitant]
     Indication: PROPHYLAXIS
     Route: 048
     Dates: start: 20130822, end: 20130822
  3. IBUPROFEN [Concomitant]
     Indication: PROPHYLAXIS
     Dosage: SINGLE
     Route: 048
     Dates: start: 20130822, end: 20130822
  4. TAKEPRON [Concomitant]
     Indication: PROPHYLAXIS
     Route: 048
     Dates: start: 20130822
  5. REBAMIPIDE [Concomitant]
     Indication: PROPHYLAXIS
     Route: 048
     Dates: start: 20130822
  6. FEBURIC [Concomitant]
     Indication: PROPHYLAXIS
     Route: 048
     Dates: start: 20130822
  7. MAGNESIUM OXIDE [Concomitant]
     Indication: PROPHYLAXIS
  8. MAGLAX [Concomitant]
     Indication: PROPHYLAXIS
     Route: 048
     Dates: start: 20130822

REACTIONS (1)
  - Tumour lysis syndrome [Recovered/Resolved]
